FAERS Safety Report 14479516 (Version 1)
Quarter: 2018Q1

REPORT INFORMATION
  Report Type: Spontaneous
  Country: US (occurrence: US)
  Receive Date: 20180201
  Receipt Date: 20180201
  Transmission Date: 20180509
  Serious: Yes (Disabling)
  Sender: FDA-Public Use
  Company Number: None

PATIENT
  Age: 38 Year
  Sex: Male
  Weight: 65.77 kg

DRUGS (13)
  1. PREVAGEN [Concomitant]
     Active Substance: DIETARY SUPPLEMENT
  2. CELEXA [Concomitant]
     Active Substance: CITALOPRAM HYDROBROMIDE
  3. HALDOL [Suspect]
     Active Substance: HALOPERIDOL
     Indication: SCHIZOPHRENIA
     Dosage: DOSE - 1 0.5 TABLET PO HS
     Route: 048
     Dates: start: 20170512, end: 20170513
  4. GOLDENEAL [Concomitant]
  5. ULTIMATE MAB [Concomitant]
  6. AMBIEN [Concomitant]
     Active Substance: ZOLPIDEM TARTRATE
  7. HUP A [Concomitant]
  8. XANAX [Concomitant]
     Active Substance: ALPRAZOLAM
  9. FINASTERIDE. [Concomitant]
     Active Substance: FINASTERIDE
  10. NEURONTIN [Concomitant]
     Active Substance: GABAPENTIN
  11. ZANAFLEX [Concomitant]
     Active Substance: TIZANIDINE HYDROCHLORIDE
  12. ECHINACEA [Concomitant]
     Active Substance: ECHINACEA, UNSPECIFIED
  13. GACIRMTECINE XR 1MG [Concomitant]
     Active Substance: GUANFACINE

REACTIONS (2)
  - Swelling face [None]
  - Swelling [None]

NARRATIVE: CASE EVENT DATE: 20170513
